FAERS Safety Report 12144260 (Version 1)
Quarter: 2016Q1

REPORT INFORMATION
  Report Type: Spontaneous
  Country: US (occurrence: None)
  Receive Date: 20160303
  Receipt Date: 20160303
  Transmission Date: 20160526
  Serious: Yes (Hospitalization, Other)
  Sender: FDA-Public Use
  Company Number: None

PATIENT
  Age: 47 Year
  Sex: Female

DRUGS (2)
  1. SHOWER TO SHOWER TALCUM POWDER [Suspect]
     Active Substance: TALC
     Indication: THERAPEUTIC SKIN CARE TOPICAL
     Route: 061
     Dates: start: 1984, end: 2014
  2. JOHNSONS BABY POWDER [Suspect]
     Active Substance: TALC
     Indication: THERAPEUTIC SKIN CARE TOPICAL
     Route: 061
     Dates: start: 1984, end: 2014

REACTIONS (6)
  - Cholelithiasis [None]
  - Pneumonia [None]
  - Ovarian cancer [None]
  - Small intestinal obstruction [None]
  - Ascites [None]
  - Hepatic steatosis [None]

NARRATIVE: CASE EVENT DATE: 201306
